FAERS Safety Report 5018813-4 (Version None)
Quarter: 2006Q2

REPORT INFORMATION
  Report Type: 
  Country: None (occurrence: None)
  Receive Date: 20060606
  Receipt Date: 20060413
  Transmission Date: 20061013
  Serious: Yes (Life-Threatening, Hospitalization)
  Sender: FDA-Public Use
  Company Number: PHBS2006JP05555

PATIENT
  Age: 74 Year
  Sex: Male
  Weight: 47 kg

DRUGS (5)
  1. GLEEVEC [Suspect]
     Indication: CHRONIC MYELOID LEUKAEMIA
     Dosage: UNK, UNK
     Route: 048
     Dates: start: 20020901, end: 20050601
  2. GLEEVEC [Suspect]
     Dosage: 300 MG, QD
     Route: 048
     Dates: start: 20060201, end: 20060407
  3. LANIRAPID [Concomitant]
     Indication: ATRIAL FIBRILLATION
     Dosage: 0.2 MG/D
     Route: 048
     Dates: start: 20050423
  4. BLOPRESS [Concomitant]
     Indication: HYPERTENSION
     Dosage: 4 MG/D
     Route: 048
     Dates: start: 20040413, end: 20060411
  5. AMISALIN [Concomitant]
     Indication: ATRIAL FIBRILLATION
     Dosage: 750 MG/D
     Route: 048
     Dates: start: 20050423, end: 20060411

REACTIONS (6)
  - ASCITES [None]
  - HYPOXIA [None]
  - INGUINAL HERNIA [None]
  - INTERSTITIAL LUNG DISEASE [None]
  - MUSCULAR WEAKNESS [None]
  - PYREXIA [None]
